FAERS Safety Report 21367136 (Version 6)
Quarter: 2025Q1

REPORT INFORMATION
  Report Type: Spontaneous
  Country: US (occurrence: US)
  Receive Date: 20220923
  Receipt Date: 20250106
  Transmission Date: 20250409
  Serious: Yes (Other)
  Sender: SANOFI AVENTIS
  Company Number: US-SA-SAC20220920000702

PATIENT
  Age: 50 Year
  Sex: Female

DRUGS (2)
  1. DUPIXENT [Suspect]
     Active Substance: DUPILUMAB
     Indication: Asthma
     Route: 058
     Dates: start: 202208, end: 202208
  2. DUPIXENT [Suspect]
     Active Substance: DUPILUMAB
     Dosage: 300 MG, QOW
     Route: 058
     Dates: start: 2022

REACTIONS (9)
  - Cerebrovascular accident [Unknown]
  - Hemiparesis [Unknown]
  - Amnesia [Unknown]
  - Constipation [Unknown]
  - Dyspnoea [Not Recovered/Not Resolved]
  - Thinking abnormal [Recovering/Resolving]
  - Depression [Recovering/Resolving]
  - Depressed mood [Recovering/Resolving]
  - Urticaria [Unknown]

NARRATIVE: CASE EVENT DATE: 20220101
